FAERS Safety Report 20057927 (Version 1)
Quarter: 2021Q4

REPORT INFORMATION
  Report Type: Spontaneous
  Country: US (occurrence: US)
  Receive Date: 20211111
  Receipt Date: 20211111
  Transmission Date: 20220303
  Serious: No
  Sender: FDA-Public Use
  Company Number: US-GILEAD-2021-0556190

PATIENT
  Age: 35 Year
  Sex: Female

DRUGS (2)
  1. TRUVADA [Suspect]
     Active Substance: EMTRICITABINE\TENOFOVIR DISOPROXIL FUMARATE
     Indication: Product used for unknown indication
     Route: 065
  2. RIFABUTIN FEREIN [Concomitant]

REACTIONS (2)
  - Renal disorder [Recovering/Resolving]
  - Renal impairment [Recovering/Resolving]
